FAERS Safety Report 7795031-8 (Version None)
Quarter: 2011Q4

REPORT INFORMATION
  Report Type: 
  Country: None (occurrence: None)
  Receive Date: 20111004
  Receipt Date: 20111003
  Transmission Date: 20120403
  Serious: Yes (Hospitalization)
  Sender: FDA-Public Use
  Company Number: PHEH2011US05746

PATIENT
  Sex: Female
  Weight: 42.177 kg

DRUGS (4)
  1. RAVCIL [Concomitant]
     Dosage: 40 MG,
     Route: 048
  2. OXIR IR [Concomitant]
     Dosage: 5 MG,
     Route: 048
  3. EXJADE [Suspect]
     Indication: IRON OVERLOAD
     Dosage: 500 MG, BID
     Route: 048
     Dates: start: 20101203
  4. ZOFRAN [Concomitant]
     Dosage: 8 MG,
     Route: 048

REACTIONS (3)
  - PAIN [None]
  - DISCOMFORT [None]
  - COUGH [None]
